FAERS Safety Report 26213199 (Version 1)
Quarter: 2025Q4

REPORT INFORMATION
  Report Type: Report from Study
  Country: US (occurrence: US)
  Receive Date: 20251230
  Receipt Date: 20251230
  Transmission Date: 20260117
  Serious: Yes (Other)
  Sender: PFIZER
  Company Number: US-PFIZER INC-PV202300198113

PATIENT
  Age: 74 Year
  Sex: Female
  Weight: 65 kg

DRUGS (8)
  1. IBRANCE [Suspect]
     Active Substance: PALBOCICLIB
     Indication: Breast cancer female
     Dosage: 125 MG P.O. DALLY DAY 1-21/28-DAY CYCLE
     Route: 048
     Dates: start: 20190313
  2. IBRANCE [Suspect]
     Active Substance: PALBOCICLIB
     Indication: Breast cancer metastatic
     Dosage: 125 MG P.O. DALLY DAY 1-21/28-DAY CYCLE
     Route: 048
     Dates: start: 20190411
  3. IBRANCE [Suspect]
     Active Substance: PALBOCICLIB
     Dosage: Q DAY, ADMINISTER ON DAYS 1 THROUGH 21 OF A 28-DAY TREATMENT CYCLE/ 21/28 DAYS
     Route: 048
  4. IBRANCE [Suspect]
     Active Substance: PALBOCICLIB
     Dosage: DAYS 1-21 OF A 28 DAY CYCLE/ADMINISTER ON DAYS 1 THROUGH 21 OF A 28-DAY TREATMENT CYCLE
     Route: 048
     Dates: start: 20251119
  5. FASLODEX [Concomitant]
     Active Substance: FULVESTRANT
     Dosage: UNK (28-DAY CYCLE)
     Dates: start: 20250730
  6. FASLODEX [Concomitant]
     Active Substance: FULVESTRANT
     Dosage: UNK
     Dates: start: 20251119
  7. FASLODEX [Concomitant]
     Active Substance: FULVESTRANT
     Dosage: UNK
     Dates: start: 20251217
  8. XELODA [Concomitant]
     Active Substance: CAPECITABINE
     Dosage: UNK

REACTIONS (7)
  - Neutropenia [Unknown]
  - Cytopenia [Unknown]
  - Muscle tightness [Unknown]
  - Neck mass [Unknown]
  - Injection site pain [Recovered/Resolved]
  - Liver function test abnormal [Unknown]
  - Hepatic enzyme increased [Unknown]
